FAERS Safety Report 4621872-1 (Version None)
Quarter: 2005Q1

REPORT INFORMATION
  Report Type: 
  Country: None (occurrence: None)
  Receive Date: 20050329
  Receipt Date: 20041123
  Transmission Date: 20050727
  Serious: Yes (Life-Threatening, Hospitalization)
  Sender: FDA-Public Use
  Company Number: ES-SANOFI-SYNTHELABO-F01200403741

PATIENT
  Sex: Male
  Weight: 77.5 kg

DRUGS (4)
  1. OXALIPLATIN [Suspect]
     Indication: COLORECTAL CANCER METASTATIC
     Route: 042
     Dates: start: 20041110, end: 20041110
  2. CAPECITABINE [Suspect]
     Dosage: 3600 MG (1000 MG/M2 TWICE DAILY FROM DAY 1 TO DAY 15, Q3W)
     Route: 048
     Dates: start: 20041110, end: 20041119
  3. CLEXANE [Concomitant]
     Indication: DEEP VEIN THROMBOSIS
     Dosage: 160 MG
     Route: 058
     Dates: start: 20040907, end: 20041118
  4. EMCONCOR [Concomitant]
     Indication: HYPERTENSION
     Dosage: 10 MG
     Route: 048
     Dates: start: 19930615

REACTIONS (7)
  - APHASIA [None]
  - CEREBRAL HAEMATOMA [None]
  - FALL [None]
  - HAEMOGLOBIN DECREASED [None]
  - HEMIPARESIS [None]
  - PLATELET COUNT DECREASED [None]
  - SYNCOPE [None]
